FAERS Safety Report 26099120 (Version 1)
Quarter: 2025Q4

REPORT INFORMATION
  Report Type: Spontaneous
  Country: US (occurrence: US)
  Receive Date: 20251128
  Receipt Date: 20251128
  Transmission Date: 20260117
  Serious: No
  Sender: BEIGENE
  Company Number: US-BEONE MEDICINES-BGN-2025-019230

PATIENT
  Age: 65 Year
  Sex: Male

DRUGS (1)
  1. BRUKINSA [Suspect]
     Active Substance: ZANUBRUTINIB
     Indication: Product used for unknown indication
     Dosage: 320 MILLIGRAM

REACTIONS (1)
  - Drug ineffective [Unknown]
